FAERS Safety Report 6256731-4 (Version None)
Quarter: 2009Q3

REPORT INFORMATION
  Report Type: 
  Country: None (occurrence: None)
  Receive Date: 20090706
  Receipt Date: 20090626
  Transmission Date: 20100115
  Serious: Yes (Other)
  Sender: FDA-Public Use
  Company Number: US-JNJFOC-20061006162

PATIENT
  Sex: Male

DRUGS (4)
  1. RISPERDAL [Suspect]
     Indication: AGGRESSION
  2. ADDERALL 10 [Concomitant]
     Route: 048
  3. SEROQUEL [Concomitant]
  4. CONCERTA [Concomitant]
     Indication: PSYCHOMOTOR HYPERACTIVITY

REACTIONS (3)
  - DIABETES MELLITUS [None]
  - SEDATION [None]
  - WEIGHT INCREASED [None]
